FAERS Safety Report 5268119-3 (Version None)
Quarter: 2007Q1

REPORT INFORMATION
  Report Type: 
  Country: None (occurrence: None)
  Receive Date: 20070314
  Receipt Date: 20070314
  Transmission Date: 20070707
  Serious: Yes (Hospitalization)
  Sender: FDA-Public Use
  Company Number: None

PATIENT
  Sex: Female
  Weight: 89.7 kg

DRUGS (3)
  1. TAXOTERE [Suspect]
     Dosage: 145 MG
  2. G-CSF (FILGRASTIM, AMGEN) [Suspect]
     Dosage: 1920  MCG
  3. GEMCITABINE HCL [Suspect]
     Dosage: 2640 MG

REACTIONS (16)
  - ACUTE RESPIRATORY DISTRESS SYNDROME [None]
  - CEREBRAL ISCHAEMIA [None]
  - DECREASED APPETITE [None]
  - HYPOGLYCAEMIA [None]
  - HYPOTENSION [None]
  - HYPOXIA [None]
  - METASTASES TO SPINE [None]
  - NAUSEA [None]
  - ORAL INTAKE REDUCED [None]
  - PARAESTHESIA ORAL [None]
  - PNEUMOCYSTIS JIROVECI PNEUMONIA [None]
  - SALIVARY GLAND NEOPLASM [None]
  - SPINAL CORD COMPRESSION [None]
  - TACHYCARDIA [None]
  - URINARY RETENTION [None]
  - VISION BLURRED [None]
